FAERS Safety Report 8811872 (Version 1)
Quarter: 2012Q4

REPORT INFORMATION
  Report Type: 
  Country: US (occurrence: US)
  Receive Date: 20120927
  Receipt Date: 20120927
  Transmission Date: 20130627
  Serious: Yes (Other)
  Sender: FDA-Public Use
  Company Number: US-ASTRAZENECA-2012SE65010

PATIENT
  Age: 75 Year
  Sex: Male
  Weight: 68 kg

DRUGS (3)
  1. CRESTOR [Suspect]
     Indication: LIPID METABOLISM DISORDER
     Route: 048
     Dates: end: 20120827
  2. PLAVIX [Concomitant]
  3. LOVAZA [Concomitant]

REACTIONS (5)
  - Rash maculo-papular [Unknown]
  - Burning sensation [Unknown]
  - Adverse event [Unknown]
  - Urticaria [Unknown]
  - Pruritus generalised [Unknown]
